FAERS Safety Report 8469731-0 (Version None)
Quarter: 2012Q2

REPORT INFORMATION
  Report Type: 
  Country: None (occurrence: None)
  Receive Date: 20120626
  Receipt Date: 20120622
  Transmission Date: 20120825
  Serious: No
  Sender: FDA-Public Use
  Company Number: US-PFIZER INC-2012151028

PATIENT
  Sex: Female

DRUGS (5)
  1. LYRICA [Suspect]
     Indication: NEURALGIA
     Dosage: 75 MG, 2X/DAY
     Route: 048
  2. LYRICA [Suspect]
     Dosage: 150 MG, 2X/DAY
     Route: 048
     Dates: end: 20120501
  3. SAVELLA [Suspect]
     Indication: NEURALGIA
     Dosage: UNK
     Dates: start: 20120501
  4. LYRICA [Suspect]
     Dosage: UNK
     Route: 048
     Dates: start: 20120601
  5. TRAZODONE [Concomitant]
     Dosage: UNK

REACTIONS (3)
  - MUSCULAR WEAKNESS [None]
  - PAIN [None]
  - DYSSTASIA [None]
